FAERS Safety Report 9550599 (Version 1)
Quarter: 2013Q3

REPORT INFORMATION
  Report Type: Spontaneous
  Country: US (occurrence: US)
  Receive Date: 20130924
  Receipt Date: 20130924
  Transmission Date: 20140515
  Serious: No
  Sender: FDA-Public Use
  Company Number: US-SANOFI-AVENTIS-2012SA089051

PATIENT
  Age: 57 Year
  Sex: Female

DRUGS (2)
  1. AUBAGIO [Suspect]
     Indication: MULTIPLE SCLEROSIS
     Route: 048
     Dates: start: 20121111
  2. ALL OTHER THERAPEUTIC PRODUCTS [Concomitant]

REACTIONS (7)
  - Arthralgia [Recovered/Resolved]
  - Fatigue [Unknown]
  - Blood alkaline phosphatase increased [Not Recovered/Not Resolved]
  - Hypoaesthesia [Unknown]
  - Paraesthesia [Unknown]
  - Diarrhoea [Recovered/Resolved]
  - Hypertension [Recovered/Resolved]
